FAERS Safety Report 20114479 (Version 1)
Quarter: 2021Q4

REPORT INFORMATION
  Report Type: Spontaneous
  Country: US (occurrence: US)
  Receive Date: 20211125
  Receipt Date: 20211125
  Transmission Date: 20220303
  Serious: No
  Sender: FDA-Public Use
  Company Number: US-SA-SAC20211117001518

PATIENT
  Age: 70 Year
  Sex: Female

DRUGS (15)
  1. DUPIXENT [Suspect]
     Active Substance: DUPILUMAB
     Indication: Rhinitis allergic
     Dosage: 300 MG, QOW
     Route: 058
     Dates: start: 20211007
  2. AMOXICILLIN [Concomitant]
     Active Substance: AMOXICILLIN
     Dosage: TAB 875-125M,
  3. CLOBETASOL [Concomitant]
     Active Substance: CLOBETASOL
  4. DILTIAZEM [Concomitant]
     Active Substance: DILTIAZEM
  5. EZETIMIBE [Concomitant]
     Active Substance: EZETIMIBE
  6. INSULIN NOS [Concomitant]
     Active Substance: INSULIN NOS
  7. LANTUS [Concomitant]
     Active Substance: INSULIN GLARGINE
     Dosage: UNK
  8. LISINOPRIL [Concomitant]
     Active Substance: LISINOPRIL
  9. PREMARIN [Concomitant]
     Active Substance: ESTROGENS, CONJUGATED
  10. TACROLIMUS [Concomitant]
     Active Substance: TACROLIMUS
  11. VENTOLIN HFA [Concomitant]
     Active Substance: ALBUTEROL SULFATE
  12. AMMONIUM LACTATE [Concomitant]
     Active Substance: AMMONIUM LACTATE
  13. CLINDAMYCIN [Concomitant]
     Active Substance: CLINDAMYCIN
  14. HYDROCHLOROTHIAZIDE [Concomitant]
     Active Substance: HYDROCHLOROTHIAZIDE
  15. TRIAMCINOLONE [Concomitant]
     Active Substance: TRIAMCINOLONE

REACTIONS (2)
  - Dermatitis atopic [Unknown]
  - Product use in unapproved indication [Unknown]

NARRATIVE: CASE EVENT DATE: 20210101
